FAERS Safety Report 10913155 (Version 1)
Quarter: 2015Q1

REPORT INFORMATION
  Report Type: Spontaneous
  Country: US (occurrence: US)
  Receive Date: 20150313
  Receipt Date: 20150313
  Transmission Date: 20150721
  Serious: No
  Sender: FDA-Public Use
  Company Number: US-PFIZER INC-2015084394

PATIENT
  Age: 41 Year
  Sex: Female
  Weight: 61 kg

DRUGS (5)
  1. ATIVAN [Concomitant]
     Active Substance: LORAZEPAM
     Indication: ANXIETY
     Dosage: 0.5 MG, 3X/DAY
     Route: 048
  2. EFFEXOR XR [Suspect]
     Active Substance: VENLAFAXINE HYDROCHLORIDE
     Indication: GENERALISED ANXIETY DISORDER
     Dosage: 37.5 MG, UNK
     Dates: start: 20150304
  3. LEVOTHYROXINE [Concomitant]
     Active Substance: LEVOTHYROXINE
     Indication: THYROID DISORDER
     Dosage: 75 ?G, 1X/DAY
     Route: 048
  4. XANAX [Concomitant]
     Active Substance: ALPRAZOLAM
     Indication: ANXIETY
     Dosage: 0.5 MG, DAILY
     Route: 048
  5. VENLAFAXINE HYDROCLORIDE [Suspect]
     Active Substance: VENLAFAXINE HYDROCHLORIDE
     Indication: DEPRESSION
     Dosage: 37.5 MG, DAILY
     Route: 048
     Dates: start: 20150304

REACTIONS (6)
  - Agitation [Not Recovered/Not Resolved]
  - Irritability [Not Recovered/Not Resolved]
  - Crying [Not Recovered/Not Resolved]
  - Energy increased [Not Recovered/Not Resolved]
  - Anxiety [Not Recovered/Not Resolved]
  - Feeling jittery [Not Recovered/Not Resolved]

NARRATIVE: CASE EVENT DATE: 20150304
